FAERS Safety Report 8148149-4 (Version None)
Quarter: 2012Q1

REPORT INFORMATION
  Report Type: 
  Country: None (occurrence: None)
  Receive Date: 20120218
  Receipt Date: 20111010
  Transmission Date: 20120608
  Serious: No
  Sender: FDA-Public Use
  Company Number: US-ALLERGAN-1105713US

PATIENT
  Age: 66 Year
  Sex: Female

DRUGS (1)
  1. BOTOX COSMETIC [Suspect]
     Indication: SKIN WRINKLING
     Dosage: 40 UNITS, SINGLE
     Route: 030
     Dates: start: 20110418, end: 20110418

REACTIONS (6)
  - INCREASED TENDENCY TO BRUISE [None]
  - BLISTER [None]
  - EYE SWELLING [None]
  - PRURITUS [None]
  - RASH [None]
  - HYPERSENSITIVITY [None]
